FAERS Safety Report 5177222-8 (Version None)
Quarter: 2006Q4

REPORT INFORMATION
  Report Type: 
  Country: None (occurrence: None)
  Receive Date: 20061218
  Receipt Date: 20061205
  Transmission Date: 20070319
  Serious: Yes (Other)
  Sender: FDA-Public Use
  Company Number: US-ELI_LILLY_AND_COMPANY-US200612000653

PATIENT
  Age: 34 Year
  Sex: Female

DRUGS (2)
  1. CYMBALTA [Suspect]
     Indication: PAIN IN EXTREMITY
     Dates: start: 20061001
  2. BETA BLOCKING AGENTS [Concomitant]
     Indication: SUPRAVENTRICULAR TACHYCARDIA

REACTIONS (1)
  - SUPRAVENTRICULAR TACHYCARDIA [None]
